FAERS Safety Report 5825914-7 (Version None)
Quarter: 2008Q3

REPORT INFORMATION
  Report Type: 
  Country: None (occurrence: None)
  Receive Date: 20080723
  Receipt Date: 20080710
  Transmission Date: 20090109
  Serious: Yes (Other)
  Sender: FDA-Public Use
  Company Number: 2008S1012180

PATIENT
  Age: 55 Year
  Sex: Male

DRUGS (6)
  1. AZATHIOPRINE [Suspect]
     Indication: MYOSITIS
     Dosage: 50 MG; ORAL
     Route: 048
     Dates: start: 20080220, end: 20080220
  2. AMOXICILLIN [Concomitant]
  3. CLARITHROMYCIN [Concomitant]
  4. LANSOPRAZOLE [Concomitant]
  5. PREDNISONE [Concomitant]
  6. RISEDRONATE SODIUM [Concomitant]

REACTIONS (3)
  - ABDOMINAL PAIN [None]
  - BLOOD GLUCOSE DECREASED [None]
  - SYNCOPE [None]
